FAERS Safety Report 9964161 (Version 3)
Quarter: 2014Q1

REPORT INFORMATION
  Report Type: Spontaneous
  Country: CA (occurrence: CA)
  Receive Date: 20140305
  Receipt Date: 20140311
  Transmission Date: 20141002
  Serious: Yes (Hospitalization, Other)
  Sender: FDA-Public Use
  Company Number: CA-BAXTER-2014BAX009214

PATIENT
  Age: 82 Year
  Sex: Female

DRUGS (15)
  1. DIANEAL PD4 SOLUTION WITH 1.5% DEXTROSE AND 2.5 MEQ/L CALCIUM [Suspect]
     Indication: RENAL FAILURE
     Route: 033
     Dates: start: 201312, end: 20140115
  2. DIANEAL PD4 SOLUTION WITH 1.5% DEXTROSE AND 2.5 MEQ/L CALCIUM [Suspect]
     Indication: PERITONEAL DIALYSIS
     Route: 033
     Dates: start: 20140116, end: 20140121
  3. DIANEAL PD4 SOLUTION WITH 1.5% DEXTROSE AND 2.5 MEQ/L CALCIUM [Suspect]
     Indication: PERITONEAL DIALYSIS
  4. DIANEAL PD4 SOLUTION WITH 2.5% DEXTROSE AND 2.5 MEQ/L CALCIUM [Suspect]
     Indication: RENAL FAILURE
     Route: 033
     Dates: start: 201312, end: 20140115
  5. DIANEAL PD4 SOLUTION WITH 2.5% DEXTROSE AND 2.5 MEQ/L CALCIUM [Suspect]
     Indication: PERITONEAL DIALYSIS
     Route: 033
     Dates: start: 20140116, end: 20140121
  6. DIANEAL PD4 SOLUTION WITH 2.5% DEXTROSE AND 2.5 MEQ/L CALCIUM [Suspect]
     Indication: PERITONEAL DIALYSIS
  7. EXTRANEAL [Suspect]
     Indication: RENAL FAILURE
     Route: 033
     Dates: start: 201312, end: 20140115
  8. EXTRANEAL [Suspect]
     Indication: PERITONEAL DIALYSIS
     Route: 033
     Dates: start: 20140116, end: 20140121
  9. EXTRANEAL [Suspect]
     Indication: PERITONEAL DIALYSIS
     Route: 033
     Dates: start: 20140122
  10. NUTRINEAL PD4 1.1% AMINO ACID PERITONEAL DIALYSIS SOLUTION [Suspect]
     Indication: RENAL FAILURE
     Route: 033
     Dates: start: 201312, end: 20140115
  11. NUTRINEAL PD4 1.1% AMINO ACID PERITONEAL DIALYSIS SOLUTION [Suspect]
     Indication: PERITONEAL DIALYSIS
     Route: 033
     Dates: start: 20140116, end: 20140121
  12. NUTRINEAL PD4 1.1% AMINO ACID PERITONEAL DIALYSIS SOLUTION [Suspect]
     Indication: PERITONEAL DIALYSIS
  13. HYDROMORPHONE [Concomitant]
     Indication: ARTHRALGIA
     Route: 048
  14. GABAPENTIN [Concomitant]
     Indication: ARTHRALGIA
     Route: 048
  15. INSULIN [Concomitant]
     Indication: DIABETES MELLITUS
     Route: 042

REACTIONS (5)
  - Urinary tract infection [Recovered/Resolved]
  - Arthralgia [Not Recovered/Not Resolved]
  - Constipation [Not Recovered/Not Resolved]
  - Fluid retention [Not Recovered/Not Resolved]
  - Pain [Not Recovered/Not Resolved]
